FAERS Safety Report 5975084-X (Version None)
Quarter: 2008Q4

REPORT INFORMATION
  Report Type: 
  Country: None (occurrence: None)
  Receive Date: 20081202
  Receipt Date: 20081201
  Transmission Date: 20090506
  Serious: Yes (Other)
  Sender: FDA-Public Use
  Company Number: BG-BRISTOL-MYERS SQUIBB COMPANY-14398572

PATIENT
  Age: 49 Year
  Sex: Female

DRUGS (3)
  1. ABILIFY [Suspect]
     Indication: SCHIZOPHRENIA
     Dosage: 3-4MONTH.
     Route: 048
     Dates: start: 20080501, end: 20081022
  2. RIVOTRIL [Concomitant]
  3. NEUROTOP RETARD [Concomitant]

REACTIONS (3)
  - ANTI-THYROID ANTIBODY POSITIVE [None]
  - BODY TEMPERATURE INCREASED [None]
  - GENERALISED OEDEMA [None]
